FAERS Safety Report 24172658 (Version 1)
Quarter: 2024Q3

REPORT INFORMATION
  Report Type: Spontaneous
  Country: CN (occurrence: CN)
  Receive Date: 20240805
  Receipt Date: 20240805
  Transmission Date: 20241016
  Serious: Yes (Hospitalization)
  Sender: SANOFI AVENTIS
  Company Number: CN-SA-SAC20240803000013

PATIENT
  Age: 41 Year
  Sex: Female
  Weight: 61 kg

DRUGS (2)
  1. OXALIPLATIN [Suspect]
     Active Substance: OXALIPLATIN
     Indication: Colon cancer
     Dosage: 140 MG, 1X
     Route: 041
     Dates: start: 20240717, end: 20240717
  2. DEXTROSE [Concomitant]
     Active Substance: DEXTROSE\DEXTROSE MONOHYDRATE
     Indication: Colon cancer
     Dosage: 250 ML, 1X
     Route: 041
     Dates: start: 20240717, end: 20240717

REACTIONS (2)
  - Tachypnoea [Recovered/Resolved]
  - Palpitations [Recovered/Resolved]

NARRATIVE: CASE EVENT DATE: 20240717
